FAERS Safety Report 5060416-X (Version None)
Quarter: 2006Q3

REPORT INFORMATION
  Report Type: 
  Country: None (occurrence: None)
  Receive Date: 20060720
  Receipt Date: 20060710
  Transmission Date: 20061208
  Serious: Yes (Hospitalization)
  Sender: FDA-Public Use
  Company Number: 2006SP002641

PATIENT
  Age: 79 Year
  Sex: Female

DRUGS (8)
  1. LUNESTA [Suspect]
     Indication: INSOMNIA
     Dosage: 3 MG; QOD; ORAL; SEE IMAGE
     Route: 048
     Dates: start: 20051201, end: 20051201
  2. LUNESTA [Suspect]
     Indication: INSOMNIA
     Dosage: 3 MG; QOD; ORAL; SEE IMAGE
     Route: 048
     Dates: start: 20051201, end: 20051201
  3. LUNESTA [Suspect]
     Indication: INSOMNIA
     Dosage: 3 MG; QOD; ORAL; SEE IMAGE
     Route: 048
     Dates: start: 20060519
  4. ATIVAN [Suspect]
     Dosage: ORAL
     Route: 048
  5. ATORVASTATIN CALCIUM [Concomitant]
  6. LEXAPRO [Concomitant]
  7. AMLODIPINE [Concomitant]
  8. ALENDRONATE SODIUM [Concomitant]

REACTIONS (4)
  - DRUG EFFECT DECREASED [None]
  - HEART RATE IRREGULAR [None]
  - OVERDOSE [None]
  - PANIC ATTACK [None]
